FAERS Safety Report 7472020-4 (Version None)
Quarter: 2011Q2

REPORT INFORMATION
  Report Type: 
  Country: None (occurrence: None)
  Receive Date: 20110511
  Receipt Date: 20100929
  Transmission Date: 20111010
  Serious: No
  Sender: FDA-Public Use
  Company Number: A0884561A

PATIENT
  Sex: Female

DRUGS (2)
  1. XELODA [Suspect]
     Route: 065
     Dates: start: 20100926
  2. TYKERB [Suspect]
     Dosage: 1250MGD PER DAY
     Route: 048
     Dates: start: 20100926

REACTIONS (1)
  - MUSCULAR WEAKNESS [None]
